FAERS Safety Report 5219387-5 (Version None)
Quarter: 2007Q1

REPORT INFORMATION
  Report Type: 
  Country: None (occurrence: None)
  Receive Date: 20070125
  Receipt Date: 20051209
  Transmission Date: 20070707
  Serious: No
  Sender: FDA-Public Use
  Company Number: US-BRISTOL-MYERS SQUIBB COMPANY-13211990

PATIENT

DRUGS (1)
  1. IFEX [Suspect]

REACTIONS (2)
  - DEVICE MALFUNCTION [None]
  - DRUG ADMINISTRATION ERROR [None]
